FAERS Safety Report 9469988 (Version 1)
Quarter: 2013Q4

REPORT INFORMATION
  Report Type: Spontaneous
  Country: US (occurrence: None)
  Receive Date: 20130820
  Receipt Date: 20130820
  Transmission Date: 20140711
  Serious: Yes (Life-Threatening)
  Sender: FDA-Public Use
  Company Number: None

PATIENT
  Age: 33 Year
  Sex: Male
  Weight: 71.5 kg

DRUGS (11)
  1. CYTARABINE [Suspect]
     Indication: ACUTE MYELOID LEUKAEMIA
     Dosage: 1000 MG/M2  IV  DAYS 1-6
     Route: 042
     Dates: start: 20130731
  2. CYTARABINE [Suspect]
     Indication: LEUKAEMIA RECURRENT
     Dosage: 1000 MG/M2  IV  DAYS 1-6
     Route: 042
     Dates: start: 20130731
  3. BORTEZOMIB [Suspect]
     Dosage: 1.84  IV  DAYS 1, 4, 8 + 11
     Route: 042
     Dates: start: 20130731
  4. HYDROMORPHONE (DILAUDID) [Concomitant]
  5. PIPERACILLIN-TAZOBACTAM (ZOSYN) [Concomitant]
  6. GABAPENTIN (NEURONTIN) [Concomitant]
  7. BUPRENORPHINE (SUBUTEX) [Concomitant]
  8. PANTOPRAZOLE (PROTONIX) [Concomitant]
  9. PAROXETINE (PAXIL) [Concomitant]
  10. ACYCLOVIR (ZOVIRAX) [Concomitant]
  11. METOPROLOL SUCCINATE XL [Concomitant]

REACTIONS (10)
  - Unresponsive to stimuli [None]
  - Hypoxia [None]
  - Hypotension [None]
  - Aspiration [None]
  - Apnoea [None]
  - Vomiting [None]
  - Pyrexia [None]
  - Blood culture positive [None]
  - Citrobacter test positive [None]
  - Klebsiella test positive [None]
